FAERS Safety Report 13953780 (Version 1)
Quarter: 2017Q3

REPORT INFORMATION
  Report Type: Spontaneous
  Country: US (occurrence: US)
  Receive Date: 20170908
  Receipt Date: 20170908
  Transmission Date: 20171128
  Serious: Yes (Hospitalization)
  Sender: FDA-Public Use
  Company Number: None

PATIENT
  Age: 53 Year
  Sex: Male
  Weight: 84.1 kg

DRUGS (1)
  1. OCRELIZUMAB. [Suspect]
     Active Substance: OCRELIZUMAB
     Indication: MULTIPLE SCLEROSIS
     Dosage: ?          OTHER FREQUENCY:ONCE;?
     Route: 041

REACTIONS (8)
  - Somnolence [None]
  - Dyspnoea [None]
  - Blood pressure increased [None]
  - Infusion related reaction [None]
  - Oxygen saturation decreased [None]
  - Tachypnoea [None]
  - Miosis [None]
  - Wheezing [None]

NARRATIVE: CASE EVENT DATE: 20170907
